FAERS Safety Report 12210080 (Version 1)
Quarter: 2016Q1

REPORT INFORMATION
  Report Type: Spontaneous
  Country: US (occurrence: US)
  Receive Date: 20160325
  Receipt Date: 20160325
  Transmission Date: 20160526
  Serious: No
  Sender: FDA-Public Use
  Company Number: US-ASTRAZENECA-2016SE16762

PATIENT
  Age: 72 Year
  Sex: Female

DRUGS (2)
  1. PRILOSEC OTC [Suspect]
     Active Substance: OMEPRAZOLE MAGNESIUM
     Route: 048
     Dates: start: 201601
  2. PRILOSEC [Suspect]
     Active Substance: OMEPRAZOLE MAGNESIUM
     Indication: PRODUCT USED FOR UNKNOWN INDICATION
     Route: 048

REACTIONS (6)
  - Diarrhoea [Recovered/Resolved]
  - Pain in extremity [Recovering/Resolving]
  - Peripheral swelling [Not Recovered/Not Resolved]
  - Onychalgia [Recovering/Resolving]
  - Headache [Recovered/Resolved]
  - Tenderness [Not Recovered/Not Resolved]
